FAERS Safety Report 7258865-4 (Version None)
Quarter: 2011Q1

REPORT INFORMATION
  Report Type: 
  Country: None (occurrence: None)
  Receive Date: 20110129
  Receipt Date: 20100702
  Transmission Date: 20110831
  Serious: No
  Sender: FDA-Public Use
  Company Number: US-ABBOTT-10P-163-0651015-00

PATIENT
  Sex: Female
  Weight: 74.91 kg

DRUGS (3)
  1. PRILOSEC [Concomitant]
     Indication: GASTROOESOPHAGEAL REFLUX DISEASE
  2. HUMIRA [Suspect]
     Indication: CROHN'S DISEASE
  3. IBUPROFEN [Concomitant]
     Indication: PRODUCT USED FOR UNKNOWN INDICATION

REACTIONS (4)
  - WRONG TECHNIQUE IN DRUG USAGE PROCESS [None]
  - DRUG DOSE OMISSION [None]
  - INJECTION SITE HAEMORRHAGE [None]
  - DEVICE MALFUNCTION [None]
